FAERS Safety Report 5279219-6 (Version None)
Quarter: 2007Q1

REPORT INFORMATION
  Report Type: 
  Country: None (occurrence: None)
  Receive Date: 20061213
  Receipt Date: 20060328
  Transmission Date: 20070707
  Serious: Yes (Hospitalization)
  Sender: FDA-Public Use
  Company Number: 2005UW19528

PATIENT
  Age: 52 Year
  Sex: Male
  Weight: 90.7194 kg

DRUGS (6)
  1. SEROQUEL [Suspect]
     Dosage: 800 MG HS PO
     Route: 048
     Dates: start: 20040908
  2. HYDROXYZINE [Concomitant]
  3. BUSPAR [Concomitant]
  4. RISPERDAL [Concomitant]
  5. REMERON [Concomitant]
  6. COGENTIN [Concomitant]

REACTIONS (1)
  - DIABETES MELLITUS NON-INSULIN-DEPENDENT [None]
